FAERS Safety Report 19684944 (Version 1)
Quarter: 2021Q3

REPORT INFORMATION
  Report Type: Spontaneous
  Country: US (occurrence: US)
  Receive Date: 20210811
  Receipt Date: 20210811
  Transmission Date: 20211014
  Serious: No
  Sender: FDA-Public Use
  Company Number: None

PATIENT
  Sex: Female
  Weight: 104.4 kg

DRUGS (1)
  1. GAMUNEX?C [Suspect]
     Active Substance: HUMAN IMMUNOGLOBULIN G
     Dosage: ?          OTHER FREQUENCY:EVERY 4 WEEKS;?
     Route: 042

REACTIONS (7)
  - Weight increased [None]
  - Fluid retention [None]
  - White blood cell count increased [None]
  - Blood test abnormal [None]
  - Chest discomfort [None]
  - Blood lactate dehydrogenase increased [None]
  - Chest pain [None]
